FAERS Safety Report 20359078 (Version 1)
Quarter: 2022Q1

REPORT INFORMATION
  Report Type: Spontaneous
  Country: CG (occurrence: CG)
  Receive Date: 20220120
  Receipt Date: 20220120
  Transmission Date: 20220423
  Serious: Yes (Other)
  Sender: FDA-Public Use
  Company Number: CG-SUN PHARMACEUTICAL INDUSTRIES LTD-2022RR-324155

PATIENT
  Age: 3 Month
  Sex: Male

DRUGS (1)
  1. ACETAMINOPHEN [Suspect]
     Active Substance: ACETAMINOPHEN
     Indication: Migraine
     Dosage: UNK
     Route: 065

REACTIONS (3)
  - Haemolytic anaemia [Unknown]
  - Exposure via breast milk [Unknown]
  - Exposure during pregnancy [Unknown]
